FAERS Safety Report 9895759 (Version 1)
Quarter: 2014Q1

REPORT INFORMATION
  Report Type: Spontaneous
  Country: US (occurrence: US)
  Receive Date: 20140213
  Receipt Date: 20140213
  Transmission Date: 20141002
  Serious: Yes (Other)
  Sender: FDA-Public Use
  Company Number: US-BRISTOL-MYERS SQUIBB COMPANY-19437755

PATIENT
  Age: 61 Year
  Sex: Male
  Weight: 90.7 kg

DRUGS (1)
  1. ORENCIA [Suspect]
     Dosage: NO OF VIALS 3
     Route: 042
     Dates: start: 20130919

REACTIONS (1)
  - Anaphylactic reaction [Unknown]
